FAERS Safety Report 5757745-0 (Version None)
Quarter: 2008Q2

REPORT INFORMATION
  Report Type: 
  Country: None (occurrence: None)
  Receive Date: 20080529
  Receipt Date: 20080513
  Transmission Date: 20081010
  Serious: Yes (Hospitalization)
  Sender: FDA-Public Use
  Company Number: DSA_31885_2008

PATIENT
  Sex: Male
  Weight: 119 kg

DRUGS (10)
  1. TEMESTA /00273201/ (TEMESTA - LORAZEPAM) (NOT SPECIFIED) [Suspect]
     Indication: AGGRESSION
     Dosage: (2.5 MG QD ORAL)
     Route: 048
     Dates: start: 20080207, end: 20080207
  2. TEMESTA /00273201/ (TEMESTA - LORAZEPAM) (NOT SPECIFIED) [Suspect]
     Indication: AGITATION
     Dosage: (2.5 MG QD ORAL)
     Route: 048
     Dates: start: 20080207, end: 20080207
  3. NOZINAN /00038601/ (NOZINAN - LEVOMEPROMAZINE) (NOT SPECIFIED) [Suspect]
     Indication: AGGRESSION
     Dosage: (50 MG QD ORAL)
     Route: 048
     Dates: start: 20080207, end: 20080207
  4. NOZINAN /00038601/ (NOZINAN - LEVOMEPROMAZINE) (NOT SPECIFIED) [Suspect]
     Indication: AGITATION
     Dosage: (50 MG QD ORAL)
     Route: 048
     Dates: start: 20080207, end: 20080207
  5. ZYPREXA [Suspect]
     Indication: AGGRESSION
     Dosage: (15 MG QD ORAL), (5 MG QD ORAL), (20 MG QD ORAL)
     Route: 048
     Dates: start: 20080207, end: 20080207
  6. ZYPREXA [Suspect]
     Indication: AGITATION
     Dosage: (15 MG QD ORAL), (5 MG QD ORAL), (20 MG QD ORAL)
     Route: 048
     Dates: start: 20080207, end: 20080207
  7. ZYPREXA [Suspect]
     Indication: AGGRESSION
     Dosage: (15 MG QD ORAL), (5 MG QD ORAL), (20 MG QD ORAL)
     Route: 048
     Dates: start: 20080208, end: 20080210
  8. ZYPREXA [Suspect]
     Indication: AGITATION
     Dosage: (15 MG QD ORAL), (5 MG QD ORAL), (20 MG QD ORAL)
     Route: 048
     Dates: start: 20080208, end: 20080210
  9. ZYPREXA [Suspect]
     Indication: AGGRESSION
     Dosage: (15 MG QD ORAL), (5 MG QD ORAL), (20 MG QD ORAL)
     Route: 048
     Dates: start: 20080211
  10. ZYPREXA [Suspect]
     Indication: AGITATION
     Dosage: (15 MG QD ORAL), (5 MG QD ORAL), (20 MG QD ORAL)
     Route: 048
     Dates: start: 20080211

REACTIONS (5)
  - APNOEA [None]
  - LOSS OF CONSCIOUSNESS [None]
  - OXYGEN SATURATION DECREASED [None]
  - POTENTIATING DRUG INTERACTION [None]
  - SNORING [None]
